FAERS Safety Report 24533430 (Version 1)
Quarter: 2024Q4

REPORT INFORMATION
  Report Type: Spontaneous
  Country: US (occurrence: None)
  Receive Date: 20241018
  Receipt Date: 20241018
  Transmission Date: 20250114
  Serious: Yes (Disabling, Other)
  Sender: Public
  Company Number: None

PATIENT
  Age: 37 Year
  Sex: Female
  Weight: 72.57 kg

DRUGS (1)
  1. PARAGARD T 380A [Suspect]
     Active Substance: COPPER

REACTIONS (9)
  - Complication of device insertion [None]
  - Device ineffective [None]
  - Device dislocation [None]
  - Heavy menstrual bleeding [None]
  - Uterine spasm [None]
  - Uterine pain [None]
  - Abdominal distension [None]
  - Gastritis [None]
  - Drug ineffective [None]

NARRATIVE: CASE EVENT DATE: 20170501
